FAERS Safety Report 7548594-1 (Version None)
Quarter: 2011Q2

REPORT INFORMATION
  Report Type: 
  Country: None (occurrence: None)
  Receive Date: 20110615
  Receipt Date: 20110606
  Transmission Date: 20111010
  Serious: Yes (Hospitalization)
  Sender: FDA-Public Use
  Company Number: IT-BRISTOL-MYERS SQUIBB COMPANY-15830953

PATIENT
  Age: 40 Year
  Sex: Male

DRUGS (7)
  1. DEANOL [Suspect]
  2. FUROSEMIDE [Suspect]
  3. POTASSIUM CHLORIDE [Suspect]
  4. HERBAL MIXTURE [Suspect]
  5. BENFLUOREX [Suspect]
  6. ST JOHN WORT [Suspect]
  7. METFORMIN HCL [Suspect]

REACTIONS (1)
  - HEPATITIS ACUTE [None]
